FAERS Safety Report 16001283 (Version 2)
Quarter: 2019Q1

REPORT INFORMATION
  Report Type: Spontaneous
  Country: CH (occurrence: CH)
  Receive Date: 20190225
  Receipt Date: 20190228
  Transmission Date: 20190418
  Serious: Yes (Hospitalization)
  Sender: FDA-Public Use
  Company Number: CH-JNJFOC-20190225517

PATIENT
  Age: 29 Year
  Sex: Male
  Weight: 77 kg

DRUGS (10)
  1. RISPERDAL [Suspect]
     Active Substance: RISPERIDONE
     Indication: ANXIETY
     Route: 048
     Dates: start: 20190102
  2. RISPERDAL [Suspect]
     Active Substance: RISPERIDONE
     Indication: PARANOID PERSONALITY DISORDER
     Route: 048
  3. RISPERDAL [Suspect]
     Active Substance: RISPERIDONE
     Indication: ANXIETY
     Route: 048
  4. RISPERDAL [Suspect]
     Active Substance: RISPERIDONE
     Indication: ANXIETY
     Route: 048
     Dates: start: 20190103
  5. RISPERDAL [Suspect]
     Active Substance: RISPERIDONE
     Indication: ANXIETY
     Route: 048
     Dates: start: 20190101
  6. RISPERDAL [Suspect]
     Active Substance: RISPERIDONE
     Indication: PARANOID PERSONALITY DISORDER
     Route: 048
     Dates: start: 20190103
  7. PANTOZOL [Concomitant]
     Active Substance: PANTOPRAZOLE SODIUM
     Route: 048
  8. RISPERDAL [Suspect]
     Active Substance: RISPERIDONE
     Indication: PARANOID PERSONALITY DISORDER
     Route: 048
     Dates: start: 20190101
  9. RISPERDAL [Suspect]
     Active Substance: RISPERIDONE
     Indication: PARANOID PERSONALITY DISORDER
     Route: 048
     Dates: start: 20190102
  10. XANAX [Concomitant]
     Active Substance: ALPRAZOLAM
     Route: 048

REACTIONS (3)
  - Blood creatine phosphokinase increased [Recovered/Resolved]
  - Drug abuse [Recovered/Resolved]
  - Extrapyramidal disorder [Recovered/Resolved]

NARRATIVE: CASE EVENT DATE: 20190101
